FAERS Safety Report 10267823 (Version 1)
Quarter: 2014Q2

REPORT INFORMATION
  Report Type: Spontaneous
  Country: US (occurrence: US)
  Receive Date: 20140630
  Receipt Date: 20140630
  Transmission Date: 20141212
  Serious: No
  Sender: FDA-Public Use
  Company Number: US-GLAXOSMITHKLINE-A1051518A

PATIENT
  Age: 37 Year
  Sex: Female

DRUGS (4)
  1. BOOSTRIX [Suspect]
     Indication: PROPHYLAXIS
     Route: 065
  2. ZANTAC [Suspect]
     Indication: PRODUCT USED FOR UNKNOWN INDICATION
     Dosage: 75MG PER DAY
     Route: 048
     Dates: start: 201306
  3. PRENATAL VITAMINS [Concomitant]
     Route: 048
     Dates: start: 201302
  4. FOLIC ACID [Concomitant]
     Dosage: 1MG PER DAY
     Route: 048
     Dates: start: 201302

REACTIONS (2)
  - Exposure during pregnancy [Unknown]
  - Exposure during pregnancy [Unknown]
